FAERS Safety Report 7073085-4 (Version None)
Quarter: 2010Q4

REPORT INFORMATION
  Report Type: 
  Country: None (occurrence: None)
  Receive Date: 20101029
  Receipt Date: 20100421
  Transmission Date: 20110411
  Serious: No
  Sender: FDA-Public Use
  Company Number: A0856112A

PATIENT
  Age: 73 Year
  Sex: Female

DRUGS (8)
  1. ADVAIR DISKUS 100/50 [Suspect]
     Indication: ASTHMA
     Dosage: 1PUFF TWICE PER DAY
     Route: 055
     Dates: start: 20100301
  2. VERAMYST [Suspect]
     Indication: SINUS CONGESTION
     Dosage: 2SPR PER DAY
     Route: 045
     Dates: start: 20100415, end: 20100418
  3. ATENOLOL [Concomitant]
  4. PREMARIN [Concomitant]
  5. IMIPRAMINE [Concomitant]
  6. CYMBALTA [Concomitant]
  7. ACETAMINOPHEN [Concomitant]
  8. VALIUM [Concomitant]

REACTIONS (6)
  - AURICULAR SWELLING [None]
  - CHEILITIS [None]
  - DISCOMFORT [None]
  - EYELID OEDEMA [None]
  - LIP DISORDER [None]
  - SWELLING FACE [None]
